FAERS Safety Report 14149621 (Version 1)
Quarter: 2017Q4

REPORT INFORMATION
  Report Type: Spontaneous
  Country: RU (occurrence: RU)
  Receive Date: 20171101
  Receipt Date: 20171101
  Transmission Date: 20180321
  Serious: Yes (Other)
  Sender: FDA-Public Use
  Company Number: RU-BAYER-2017-206961

PATIENT
  Age: 44 Year
  Sex: Female

DRUGS (2)
  1. QLAIRA [Suspect]
     Active Substance: DIENOGEST\ESTRADIOL VALERATE
     Indication: CONTRACEPTION
     Dosage: UNK
     Route: 048
     Dates: start: 201702, end: 201709
  2. QLAIRA [Suspect]
     Active Substance: DIENOGEST\ESTRADIOL VALERATE
     Indication: OVARIAN CYST

REACTIONS (4)
  - Uterine haemorrhage [None]
  - Uterine enlargement [None]
  - Vaginal haemorrhage [Not Recovered/Not Resolved]
  - Uterine haemorrhage [None]

NARRATIVE: CASE EVENT DATE: 20170917
